FAERS Safety Report 4699670-2 (Version None)
Quarter: 2005Q2

REPORT INFORMATION
  Report Type: 
  Country: None (occurrence: None)
  Receive Date: 20050623
  Receipt Date: 20050614
  Transmission Date: 20051028
  Serious: Yes (Hospitalization, Other)
  Sender: FDA-Public Use
  Company Number: 2005089521

PATIENT
  Sex: Male

DRUGS (10)
  1. MINIPRESS XL [Suspect]
     Indication: ILL-DEFINED DISORDER
     Dosage: (2.5 MG  )
  2. CLOPIDOGREL BISULFATE [Concomitant]
  3. ASPIRIN [Concomitant]
  4. CARVEDILOL [Concomitant]
  5. RAMIPRIL [Concomitant]
  6. LOSARTAN POTASSIUM [Concomitant]
  7. HYDROCHLOROTHIAZIDE [Concomitant]
  8. SIMVASTATIN [Concomitant]
  9. AMIODARONE HCL [Concomitant]
  10. SORBITRATE (ISOSORBIDE DINITRATE) [Concomitant]

REACTIONS (3)
  - CEREBRAL ARTERY OCCLUSION [None]
  - CEREBRAL ATHEROSCLEROSIS [None]
  - CEREBRAL INFARCTION [None]
